FAERS Safety Report 5556879-3 (Version None)
Quarter: 2007Q4

REPORT INFORMATION
  Report Type: 
  Country: None (occurrence: None)
  Receive Date: 20071214
  Receipt Date: 20071203
  Transmission Date: 20080405
  Serious: Yes (Other)
  Sender: FDA-Public Use
  Company Number: PHRM2007FR02791

PATIENT
  Age: 26 Year
  Sex: Female

DRUGS (5)
  1. HALDOL [Concomitant]
  2. TERCIAN [Concomitant]
  3. SULFARLEM [Concomitant]
  4. EFFEXOR [Concomitant]
  5. TEGRETOL [Suspect]
     Indication: SCHIZOAFFECTIVE DISORDER
     Dosage: 200 MG, BID
     Route: 048
     Dates: start: 20071106

REACTIONS (1)
  - ANGIOEDEMA [None]
